FAERS Safety Report 7551178-2 (Version None)
Quarter: 2011Q2

REPORT INFORMATION
  Report Type: 
  Country: None (occurrence: None)
  Receive Date: 20110616
  Receipt Date: 20110602
  Transmission Date: 20111010
  Serious: Yes (Hospitalization, Other)
  Sender: FDA-Public Use
  Company Number: PHHY2011BR02768

PATIENT
  Sex: Female

DRUGS (6)
  1. ATENOLOL [Concomitant]
     Indication: HYPERTENSION
     Dosage: 100 MG, TWO TABLETS DAILY
     Route: 048
  2. SERTRALINE HYDROCHLORIDE [Concomitant]
     Indication: DEPRESSION
     Dosage: 50 MG, ONE TABLET DAILY
  3. DIOVAN HCT [Suspect]
     Indication: HYPERTENSION
     Dosage: ONE TABLET (VALSARTAN 160MG AND HYDROCHLOROTIAZIDE 12.5MG) DAILY
     Route: 048
  4. CLONAZEPAM [Concomitant]
     Indication: ANXIETY
     Dosage: 2 MG, ONE TABLET DAILY
     Route: 048
  5. SIMVASTATIN [Concomitant]
     Indication: LEFT VENTRICLE OUTFLOW TRACT OBSTRUCTION
     Dosage: 40 MG, TWO TABLETS DAILY
     Route: 048
  6. ASPIRIN [Concomitant]
     Indication: LEFT VENTRICLE OUTFLOW TRACT OBSTRUCTION
     Dosage: 100 MG, 4 TABLETS DAILY
     Route: 048

REACTIONS (5)
  - DEPRESSED MOOD [None]
  - WRONG TECHNIQUE IN DRUG USAGE PROCESS [None]
  - ANXIETY [None]
  - ANGINA PECTORIS [None]
  - DEPRESSION [None]
